FAERS Safety Report 9870137 (Version 2)
Quarter: 2014Q1

REPORT INFORMATION
  Report Type: Spontaneous
  Country: FR (occurrence: None)
  Receive Date: 20140131
  Receipt Date: 20140304
  Transmission Date: 20141002
  Serious: Yes (Hospitalization)
  Sender: FDA-Public Use
  Company Number: 2014019195

PATIENT
  Age: 44 Year
  Sex: Male

DRUGS (5)
  1. FRAGMINE [Suspect]
     Route: 058
     Dates: start: 20131108, end: 20131114
  2. IXPRIM [Suspect]
     Dosage: 2 DF (325MG/37.5MG)
     Route: 048
     Dates: start: 20131108, end: 20131111
  3. PARIET [Suspect]
     Route: 048
     Dates: start: 20131108, end: 20131111
  4. TOPALGIC(TRAMADOL HYDROCHLORIDE) [Concomitant]
  5. COPOLIPRANE (CODEINE PHOSPHATE, PARACETAMOL) [Concomitant]

REACTIONS (3)
  - Rash [None]
  - Erysipelas [None]
  - Postoperative wound infection [None]
